FAERS Safety Report 18852480 (Version 2)
Quarter: 2021Q2

REPORT INFORMATION
  Report Type: Spontaneous
  Country: US (occurrence: US)
  Receive Date: 20210205
  Receipt Date: 20210517
  Transmission Date: 20210717
  Serious: Yes (Other)
  Sender: FDA-Public Use
  Company Number: US-GLAXOSMITHKLINE-US2021GSK029751

PATIENT
  Sex: Male

DRUGS (12)
  1. ZANTAC [Suspect]
     Active Substance: RANITIDINE HYDROCHLORIDE
     Dosage: 150 MG, QD
     Route: 065
     Dates: start: 200001, end: 201012
  2. RANITIDINE. [Suspect]
     Active Substance: RANITIDINE
     Dosage: 150 MG, QD
     Route: 065
     Dates: start: 200001, end: 201012
  3. ZANTAC [Suspect]
     Active Substance: RANITIDINE HYDROCHLORIDE
     Indication: GASTRIC OPERATION
     Dosage: 150 MG, QD
     Route: 065
     Dates: start: 200001, end: 201012
  4. ZANTAC [Suspect]
     Active Substance: RANITIDINE HYDROCHLORIDE
     Indication: PYELOPLASTY
     Dosage: 75 MG BOTH
     Route: 065
     Dates: start: 200001, end: 201012
  5. RANITIDINE. [Suspect]
     Active Substance: RANITIDINE
     Dosage: 150 MG, QD
     Route: 065
     Dates: start: 200001, end: 201012
  6. ZANTAC [Suspect]
     Active Substance: RANITIDINE HYDROCHLORIDE
     Dosage: UNK
  7. RANITIDINE. [Suspect]
     Active Substance: RANITIDINE
     Indication: PYELOPLASTY
     Dosage: 75 MG PRESCRIPTION
     Route: 065
     Dates: start: 200001, end: 201012
  8. RANITIDINE. [Suspect]
     Active Substance: RANITIDINE
     Indication: PYELOPLASTY
     Dosage: 75 MG PRESCRIPTION
     Route: 065
     Dates: start: 200001, end: 201012
  9. RANITIDINE. [Suspect]
     Active Substance: RANITIDINE
     Indication: GASTRIC OPERATION
     Dosage: 75 MG PRESCRIPTION
     Route: 065
     Dates: start: 200001, end: 201012
  10. ZANTAC [Suspect]
     Active Substance: RANITIDINE HYDROCHLORIDE
     Indication: GASTRIC OPERATION
     Dosage: 75 MG BOTH
     Route: 065
     Dates: start: 200001, end: 201012
  11. ZANTAC [Suspect]
     Active Substance: RANITIDINE HYDROCHLORIDE
     Indication: PYELOPLASTY
     Dosage: 75 MG BOTH
     Route: 065
     Dates: start: 200001, end: 201012
  12. RANITIDINE. [Suspect]
     Active Substance: RANITIDINE
     Indication: GASTRIC OPERATION
     Dosage: 75 MG PRESCRIPTION
     Route: 065
     Dates: start: 200001, end: 201012

REACTIONS (1)
  - Prostate cancer [Unknown]
